FAERS Safety Report 6448053-3 (Version None)
Quarter: 2009Q4

REPORT INFORMATION
  Report Type: 
  Country: None (occurrence: None)
  Receive Date: 20091120
  Receipt Date: 20091109
  Transmission Date: 20100525
  Serious: No
  Sender: FDA-Public Use
  Company Number: PT-ROCHE-669054

PATIENT
  Age: 27 Year
  Sex: Female

DRUGS (2)
  1. TAMIFLU [Suspect]
     Indication: DRUG USE FOR UNKNOWN INDICATION
     Dosage: 750 MG OF OSELTAMIVIR IN A SINGLE ADMINISTRATION BY ORAL ROUTE.  DRUG SUSPENDED FOR FOR 24 HOURS.
     Route: 048
  2. TAMIFLU [Suspect]
     Dosage: FREQUENCY: TWICE DAILY FOR 5 DAYS.
     Route: 048

REACTIONS (2)
  - NO ADVERSE EVENT [None]
  - OVERDOSE [None]
